FAERS Safety Report 8911456 (Version 1)
Quarter: 2012Q4

REPORT INFORMATION
  Report Type: 
  Country: CH (occurrence: CH)
  Receive Date: 20121116
  Receipt Date: 20121116
  Transmission Date: 20130627
  Serious: Yes (Hospitalization)
  Sender: FDA-Public Use
  Company Number: CH-SANOFI-AVENTIS-2012SA081939

PATIENT
  Age: 66 Year
  Sex: Female
  Weight: 62 kg

DRUGS (3)
  1. ARAVA [Suspect]
     Indication: RHEUMATOID ARTHRITIS
     Route: 048
     Dates: start: 20121016
  2. PNEUMOVAX [Suspect]
     Indication: PROPHYLACTIC
     Route: 030
     Dates: start: 20121017, end: 20121017
  3. METHOTREXAT [Suspect]
     Indication: RHEUMATOID ARTHRITIS
     Route: 065
     Dates: start: 20120915

REACTIONS (6)
  - Injection site inflammation [Recovering/Resolving]
  - Injection site infection [Recovering/Resolving]
  - Injection site pain [Recovering/Resolving]
  - Injection site erythema [Recovering/Resolving]
  - Pyrexia [Recovering/Resolving]
  - Injection site warmth [Recovering/Resolving]
